FAERS Safety Report 4604348-7 (Version None)
Quarter: 2005Q1

REPORT INFORMATION
  Report Type: 
  Country: None (occurrence: None)
  Receive Date: 20050309
  Receipt Date: 20050309
  Transmission Date: 20050727
  Serious: Yes (Other)
  Sender: FDA-Public Use
  Company Number: None

PATIENT
  Age: 71 Year
  Sex: Female
  Weight: 74.3899 kg

DRUGS (11)
  1. MIACALCIN [Suspect]
     Indication: OSTEOPENIA
     Dosage: USED 2 X ONLY
     Dates: start: 20050303, end: 20050304
  2. KEFLEX [Concomitant]
  3. ELAVIL [Concomitant]
  4. LORAZEPAM [Concomitant]
  5. TOPROL-XL [Concomitant]
  6. AQUA-TAB [Concomitant]
  7. LASIX [Concomitant]
  8. DARVOCET [Concomitant]
  9. TAGAMET [Concomitant]
  10. PLAVIX [Concomitant]
  11. PREMARIN [Concomitant]

REACTIONS (3)
  - LIP BLISTER [None]
  - PAIN [None]
  - SKIN IRRITATION [None]
